FAERS Safety Report 6175318-5 (Version None)
Quarter: 2009Q2

REPORT INFORMATION
  Report Type: 
  Country: None (occurrence: None)
  Receive Date: 20090429
  Receipt Date: 20090416
  Transmission Date: 20091009
  Serious: Yes (Hospitalization, Other)
  Sender: FDA-Public Use
  Company Number: 20090528

PATIENT
  Age: 52 Year

DRUGS (2)
  1. OMEPRAZOLE [Suspect]
     Indication: GASTROOESOPHAGEAL REFLUX DISEASE
     Dosage: 20 MG, ORAL
     Route: 048
     Dates: start: 20080601
  2. LEVOTHYROXINE SODIUM [Concomitant]

REACTIONS (2)
  - EPISTAXIS [None]
  - THYROID CANCER [None]
